FAERS Safety Report 16197565 (Version 1)
Quarter: 2019Q2

REPORT INFORMATION
  Report Type: Spontaneous
  Country: US (occurrence: US)
  Receive Date: 20190311
  Receipt Date: 20190311
  Transmission Date: 20190711
  Serious: Yes (Hospitalization)
  Sender: FDA-Public Use
  Company Number: None

PATIENT
  Age: 57 Year
  Sex: Male

DRUGS (1)
  1. IOHEXOL [Suspect]
     Active Substance: IOHEXOL
     Indication: ANGIOGRAM
     Route: 048
     Dates: start: 20180506, end: 20180506

REACTIONS (2)
  - Pyrexia [None]
  - Angioedema [None]

NARRATIVE: CASE EVENT DATE: 20180506
